FAERS Safety Report 10902209 (Version 1)
Quarter: 2015Q1

REPORT INFORMATION
  Report Type: Spontaneous
  Country: DE (occurrence: DE)
  Receive Date: 20150310
  Receipt Date: 20150310
  Transmission Date: 20150721
  Serious: Yes (Other)
  Sender: FDA-Public Use
  Company Number: DE-TEVA-544068GER

PATIENT
  Age: 35 Year
  Sex: Male

DRUGS (2)
  1. ARSENIC TRIOXIDE, TRISENOX? [Suspect]
     Active Substance: ARSENIC TRIOXIDE
     Indication: ACUTE PROMYELOCYTIC LEUKAEMIA
     Route: 065
  2. ATRA [Concomitant]
     Active Substance: TRETINOIN

REACTIONS (1)
  - Pneumonia fungal [Recovered/Resolved]
